FAERS Safety Report 8167873-0 (Version None)
Quarter: 2012Q1

REPORT INFORMATION
  Report Type: 
  Country: None (occurrence: None)
  Receive Date: 20120227
  Receipt Date: 20120216
  Transmission Date: 20120608
  Serious: Yes (Other)
  Sender: FDA-Public Use
  Company Number: US-BAYER-2011-075154

PATIENT
  Sex: Female
  Weight: 143 kg

DRUGS (4)
  1. YAZ [Suspect]
     Dosage: UNK
     Route: 048
     Dates: start: 20080901, end: 20081101
  2. LASIX [Concomitant]
  3. BENAZEPRIL HYDROCHLORIDE [Concomitant]
  4. POTASSIUM CHLORIDE [Concomitant]

REACTIONS (2)
  - BILIARY DYSKINESIA [None]
  - GALLBLADDER INJURY [None]
